FAERS Safety Report 5562657-1 (Version None)
Quarter: 2007Q4

REPORT INFORMATION
  Report Type: 
  Country: None (occurrence: None)
  Receive Date: 20071217
  Receipt Date: 20071207
  Transmission Date: 20080405
  Serious: Yes (Hospitalization)
  Sender: FDA-Public Use
  Company Number: US-JNJFOC-20071202793

PATIENT
  Sex: Male
  Weight: 88.45 kg

DRUGS (8)
  1. RISPERDAL [Suspect]
     Indication: SCHIZOAFFECTIVE DISORDER
     Route: 049
  2. RISPERDAL CONSTA [Suspect]
     Indication: SCHIZOAFFECTIVE DISORDER
     Route: 030
  3. METAFORMIN [Concomitant]
     Indication: DIABETES MELLITUS
  4. LIPITOR [Concomitant]
     Indication: BLOOD CHOLESTEROL
  5. LOTREL [Concomitant]
     Indication: BLOOD CHOLESTEROL
  6. TRICOR [Concomitant]
     Indication: HYPERTENSION
  7. TRAZODONE HCL [Concomitant]
  8. AVALIDE [Concomitant]

REACTIONS (3)
  - DEPRESSION [None]
  - PARANOIA [None]
  - WEIGHT DECREASED [None]
